FAERS Safety Report 4421607-1 (Version None)
Quarter: 2004Q3

REPORT INFORMATION
  Report Type: 
  Country: None (occurrence: None)
  Receive Date: 20040804
  Receipt Date: 20070620
  Transmission Date: 20050211
  Serious: Yes (Life-Threatening, Hospitalization)
  Sender: FDA-Public Use
  Company Number: A02200401611

PATIENT
  Age: 80 Year
  Sex: Male

DRUGS (14)
  1. PLAVIX [Suspect]
     Indication: CORONARY ANGIOPLASTY
     Dosage: 300 MG LOADING DOSE THEN 75 MG DAILY
     Route: 048
     Dates: start: 20040504, end: 20040512
  2. PLAVIX [Suspect]
     Indication: CORONARY ARTERIAL STENT INSERTION
     Dosage: 300 MG LOADING DOSE THEN 75 MG DAILY
     Route: 048
     Dates: start: 20040504, end: 20040512
  3. ASPIRIN [Concomitant]
  4. ADANCOR (NICORANDIL) [Concomitant]
  5. OMEPRAZOLE [Concomitant]
  6. LEVOTHYROXINE SODIUM [Concomitant]
  7. PRAXILENE (NAFTIDROFURYL OXALATE) [Concomitant]
  8. AERIUS (DESLORATADINE) [Concomitant]
  9. CAZODEX (BICALUTAMIDE) [Concomitant]
  10. BISOPROLOL FUMARATE [Concomitant]
  11. BEFIZAL (BEZAFIBRATE) [Concomitant]
  12. PRAVASTATIN [Concomitant]
  13. CALCIPRAINE (HEPARIN CALCIUM) [Concomitant]
  14. TRAMADOL HCL [Concomitant]

REACTIONS (20)
  - ANAEMIA [None]
  - ANGINA PECTORIS [None]
  - AORTIC STENOSIS [None]
  - ATRIOVENTRICULAR BLOCK COMPLETE [None]
  - CARDIAC MURMUR [None]
  - CLOSTRIDIUM COLITIS [None]
  - CORONARY ARTERY STENOSIS [None]
  - CORONARY ARTERY THROMBOSIS [None]
  - DRUG INEFFECTIVE FOR UNAPPROVED INDICATION [None]
  - DRUG RESISTANCE [None]
  - EJECTION FRACTION DECREASED [None]
  - HEPATOJUGULAR REFLUX [None]
  - HYPOTENSION [None]
  - MYOCARDIAL INFARCTION [None]
  - MYOCARDIAL ISCHAEMIA [None]
  - PERICARDIAL EFFUSION [None]
  - RENAL FAILURE CHRONIC [None]
  - STENT OCCLUSION [None]
  - VENTRICULAR FIBRILLATION [None]
  - VENTRICULAR HYPOKINESIA [None]
